FAERS Safety Report 16990463 (Version 1)
Quarter: 2020Q3

REPORT INFORMATION
  Report Type: Report from Study
  Country: US (occurrence: US)
  Receive Date: 20191104
  Receipt Date: 20191104
  Transmission Date: 20201104
  Serious: Yes (Hospitalization)
  Sender: FDA-Public Use
  Company Number: US-JNJFOC-20160314353

PATIENT
  Age: 51 Year
  Sex: Female
  Weight: 90 kg

DRUGS (4)
  1. IBRUTINIB [Suspect]
     Active Substance: IBRUTINIB
     Indication: CHRONIC LYMPHOCYTIC LEUKAEMIA
     Route: 048
     Dates: start: 20150519, end: 20160104
  2. RITUXIMAB. [Suspect]
     Active Substance: RITUXIMAB
     Indication: CHRONIC LYMPHOCYTIC LEUKAEMIA
     Dosage: 50 MG/M2, OVER 4 HRS, DAY 1 (CYCLE 2)
     Route: 042
     Dates: start: 201506, end: 20151103
  3. RITUXIMAB. [Suspect]
     Active Substance: RITUXIMAB
     Dosage: 325 MG/M2, DAY 2 (CYCLE 2)
     Route: 042
  4. RITUXIMAB. [Suspect]
     Active Substance: RITUXIMAB
     Dosage: 50 MG/M2, DAY ONE (CYCLE 3?7)
     Route: 042

REACTIONS (5)
  - Cellulitis [Recovered/Resolved with Sequelae]
  - Sepsis [Unknown]
  - Dermatitis bullous [Not Recovered/Not Resolved]
  - Deep vein thrombosis [Not Recovered/Not Resolved]
  - Skin infection [Recovered/Resolved with Sequelae]

NARRATIVE: CASE EVENT DATE: 20160102
